FAERS Safety Report 6067470-7 (Version None)
Quarter: 2009Q1

REPORT INFORMATION
  Report Type: 
  Country: None (occurrence: None)
  Receive Date: 20090205
  Receipt Date: 20090126
  Transmission Date: 20090719
  Serious: Yes (Death)
  Sender: FDA-Public Use
  Company Number: US-ELI_LILLY_AND_COMPANY-US200901005512

PATIENT
  Age: 31 Year
  Sex: Female

DRUGS (11)
  1. CYMBALTA [Suspect]
     Dosage: 1 D/F, UNK
  2. VENLAFAXINE HCL [Concomitant]
     Dosage: 1 D/F, UNK
  3. ACETAMINOPHEN AND HYDROCODONE BITARTRATE [Concomitant]
     Dosage: 1 D/F, UNK
  4. VALPROIC ACID [Concomitant]
     Dosage: 1 D/F, UNK
  5. PROMETHAZINE HCL AND CODEINE [Concomitant]
     Dosage: 1 D/F, UNK
  6. TRAZODONE HCL [Concomitant]
     Dosage: 1 D/F, UNK
  7. PSEUDOEPHEDRINE HCL [Concomitant]
     Dosage: 1 D/F, UNK
  8. DIPHENHYDRAMINE HCL [Concomitant]
     Dosage: 1 D/F, UNK
  9. ACETAMINOPHEN [Concomitant]
     Dosage: 1 D/F, UNK
  10. ACETAMINOPHEN W/DIPHENHYDRAMINE HYDROCHLORIDE [Concomitant]
     Dosage: 1 D/F, UNK
  11. ETHANOL [Concomitant]
     Dosage: 1 D/F, UNK

REACTIONS (1)
  - DEATH [None]
